FAERS Safety Report 5165723-8 (Version None)
Quarter: 2006Q4

REPORT INFORMATION
  Report Type: 
  Country: None (occurrence: None)
  Receive Date: 20061128
  Receipt Date: 20061117
  Transmission Date: 20070319
  Serious: Yes (Death)
  Sender: FDA-Public Use
  Company Number: 2006AL003615

PATIENT
  Age: 66 Year
  Sex: Female

DRUGS (1)
  1. GABAPENTIN [Suspect]
     Indication: ABDOMINAL PAIN
     Dosage: 600 MG; TID; PO
     Route: 048

REACTIONS (3)
  - BLINDNESS [None]
  - METASTATIC NEOPLASM [None]
  - OVARIAN CANCER [None]
